FAERS Safety Report 19644200 (Version 2)
Quarter: 2022Q1

REPORT INFORMATION
  Report Type: Spontaneous
  Country: US (occurrence: US)
  Receive Date: 20210801
  Receipt Date: 20220225
  Transmission Date: 20220423
  Serious: Yes (Other)
  Sender: FDA-Public Use
  Company Number: US-GILEAD-2021-0542330

PATIENT
  Sex: Male
  Weight: 79.365 kg

DRUGS (40)
  1. TRUVADA [Suspect]
     Active Substance: EMTRICITABINE\TENOFOVIR DISOPROXIL FUMARATE
     Indication: HIV infection
     Dosage: UNK
     Route: 048
     Dates: start: 2007, end: 201101
  2. TRUVADA [Suspect]
     Active Substance: EMTRICITABINE\TENOFOVIR DISOPROXIL FUMARATE
     Dosage: UNK
     Route: 048
     Dates: start: 20110119, end: 201802
  3. BIKTARVY [Concomitant]
     Active Substance: BICTEGRAVIR SODIUM\EMTRICITABINE\TENOFOVIR ALAFENAMIDE FUMARATE
  4. NORVIR [Concomitant]
     Active Substance: RITONAVIR
  5. PREZISTA [Concomitant]
     Active Substance: DARUNAVIR ETHANOLATE
  6. TIVICAY [Concomitant]
     Active Substance: DOLUTEGRAVIR SODIUM
  7. ALBUTEROL [Concomitant]
     Active Substance: ALBUTEROL
  8. ALENDRONATE [Concomitant]
     Active Substance: ALENDRONATE SODIUM
  9. AMLODIPINE [Concomitant]
     Active Substance: AMLODIPINE BESYLATE
  10. ATORVASTATIN [Concomitant]
     Active Substance: ATORVASTATIN
  11. AZITHROMYCIN [Concomitant]
     Active Substance: AZITHROMYCIN
  12. BENZONATATE [Concomitant]
     Active Substance: BENZONATATE
  13. CEPHALEXIN [Concomitant]
     Active Substance: CEPHALEXIN
  14. CIPROFLOXACIN HYDROCHLORIDE [Concomitant]
     Active Substance: CIPROFLOXACIN HYDROCHLORIDE
  15. CIPROFLOXACIN [Concomitant]
     Active Substance: CIPROFLOXACIN
  16. ASPIRIN [Concomitant]
     Active Substance: ASPIRIN
  17. CYCLOBENZAPRINE [Concomitant]
     Active Substance: CYCLOBENZAPRINE
  18. DOXYCYCLINE HYCLATE [Concomitant]
     Active Substance: DOXYCYCLINE HYCLATE
  19. FENOFIBRATE [Concomitant]
     Active Substance: FENOFIBRATE
  20. GABAPENTIN [Concomitant]
     Active Substance: GABAPENTIN
  21. HYDROCHLOROTHIAZIDE [Concomitant]
     Active Substance: HYDROCHLOROTHIAZIDE
  22. HYDROCODONE [Concomitant]
     Active Substance: HYDROCODONE
  23. CODEINE PHOSPHATE\GUAIFENESIN [Concomitant]
     Active Substance: CODEINE PHOSPHATE\GUAIFENESIN
  24. KETOCONAZOLE [Concomitant]
     Active Substance: KETOCONAZOLE
  25. LIDOCAINE [Concomitant]
     Active Substance: LIDOCAINE
  26. LISINOPRIL [Concomitant]
     Active Substance: LISINOPRIL
  27. METFORMIN [Concomitant]
     Active Substance: METFORMIN HYDROCHLORIDE
  28. METRONIDAZOLE [Concomitant]
     Active Substance: METRONIDAZOLE
  29. MUPIROCIN [Concomitant]
     Active Substance: MUPIROCIN
  30. NEOMYCIN [Concomitant]
     Active Substance: NEOMYCIN
  31. ONDANSETRON [Concomitant]
     Active Substance: ONDANSETRON
  32. OXYCODONE [Concomitant]
     Active Substance: OXYCODONE
  33. PRAVASTATIN [Concomitant]
     Active Substance: PRAVASTATIN
  34. PREDNISONE [Concomitant]
     Active Substance: PREDNISONE
  35. PROAIR BRONQUIAL [Concomitant]
  36. SULFAMETHOXAZOLE [Concomitant]
     Active Substance: SULFAMETHOXAZOLE
  37. TRIAMCINOLONE [Concomitant]
     Active Substance: TRIAMCINOLONE
  38. TRULICITY [Concomitant]
     Active Substance: DULAGLUTIDE
  39. VALACYCLOVIR [Concomitant]
     Active Substance: VALACYCLOVIR HYDROCHLORIDE
  40. XARELTO [Concomitant]
     Active Substance: RIVAROXABAN

REACTIONS (10)
  - Osteoporosis [Not Recovered/Not Resolved]
  - Upper limb fracture [Unknown]
  - Tibia fracture [Unknown]
  - Bone density decreased [Unknown]
  - Emotional distress [Not Recovered/Not Resolved]
  - Anhedonia [Not Recovered/Not Resolved]
  - Anxiety [Not Recovered/Not Resolved]
  - Pain [Not Recovered/Not Resolved]
  - Radius fracture [Recovered/Resolved]
  - Impaired quality of life [Not Recovered/Not Resolved]

NARRATIVE: CASE EVENT DATE: 20100101
